FAERS Safety Report 7122571-7 (Version None)
Quarter: 2010Q4

REPORT INFORMATION
  Report Type: 
  Country: None (occurrence: None)
  Receive Date: 20101124
  Receipt Date: 20101011
  Transmission Date: 20110411
  Serious: Yes (Death, Other)
  Sender: FDA-Public Use
  Company Number: US-BAXTER-2010BH001623

PATIENT
  Age: 73 Year
  Sex: Female

DRUGS (35)
  1. HEPARIN SODIUM INJECTION [Suspect]
     Indication: HAEMODIALYSIS
     Route: 065
  2. HEPARIN SODIUM INJECTION [Suspect]
     Route: 042
     Dates: start: 20070711, end: 20070711
  3. HEPARIN SODIUM INJECTION [Suspect]
     Route: 042
     Dates: start: 20070730, end: 20070730
  4. HEPARIN SODIUM INJECTION [Suspect]
     Route: 042
     Dates: start: 20070712, end: 20070712
  5. HEPARIN SODIUM INJECTION [Suspect]
     Route: 042
     Dates: start: 20070714, end: 20070714
  6. HEPARIN SODIUM INJECTION [Suspect]
     Route: 042
     Dates: start: 20070716, end: 20070716
  7. HEPARIN SODIUM INJECTION [Suspect]
     Route: 042
     Dates: start: 20070719, end: 20070719
  8. HEPARIN SODIUM INJECTION [Suspect]
     Route: 042
     Dates: start: 20070721, end: 20070721
  9. HEPARIN SODIUM INJECTION [Suspect]
     Route: 042
     Dates: start: 20070723, end: 20070723
  10. HEPARIN SODIUM INJECTION [Suspect]
     Route: 042
     Dates: start: 20070726, end: 20070726
  11. HEPARIN SODIUM INJECTION [Suspect]
     Route: 042
     Dates: start: 20070728, end: 20070728
  12. HEPARIN SODIUM INJECTION [Suspect]
     Route: 042
     Dates: start: 20071203, end: 20071203
  13. HEPARIN SODIUM INJECTION [Suspect]
     Route: 042
     Dates: start: 20071205, end: 20071205
  14. HEPARIN SODIUM INJECTION [Suspect]
     Route: 042
     Dates: start: 20071207, end: 20071207
  15. HEPARIN SODIUM INJECTION [Suspect]
     Route: 042
     Dates: start: 20071210, end: 20071210
  16. HEPARIN SODIUM INJECTION [Suspect]
     Route: 042
     Dates: start: 20071212, end: 20071212
  17. HEPARIN SODIUM INJECTION [Suspect]
     Route: 042
     Dates: start: 20071214, end: 20071214
  18. HEPARIN SODIUM INJECTION [Suspect]
     Route: 042
     Dates: start: 20071217, end: 20071217
  19. HEPARIN SODIUM INJECTION [Suspect]
     Route: 042
     Dates: start: 20071219, end: 20071219
  20. HEPARIN SODIUM INJECTION [Suspect]
     Route: 042
     Dates: start: 20071221, end: 20071221
  21. HEPARIN SODIUM INJECTION [Suspect]
     Route: 042
     Dates: start: 20071223, end: 20071223
  22. HEPARIN SODIUM INJECTION [Suspect]
     Route: 042
     Dates: start: 20071226, end: 20071226
  23. HEPARIN SODIUM INJECTION [Suspect]
     Route: 042
     Dates: start: 20071228, end: 20071228
  24. HEPARIN SODIUM INJECTION [Suspect]
     Route: 042
     Dates: start: 20071230, end: 20071230
  25. HEPARIN SODIUM INJECTION [Suspect]
     Route: 042
     Dates: start: 20080104, end: 20080104
  26. HEPARIN SODIUM INJECTION [Suspect]
     Route: 042
     Dates: start: 20080107, end: 20080107
  27. HEPARIN SODIUM INJECTION [Suspect]
     Route: 042
     Dates: start: 20080109, end: 20080109
  28. HEPARIN SODIUM INJECTION [Suspect]
     Route: 042
     Dates: start: 20080111, end: 20080111
  29. HEPARIN SODIUM INJECTION [Suspect]
     Route: 042
     Dates: start: 20080113, end: 20080113
  30. HEPARIN SODIUM INJECTION [Suspect]
     Route: 042
     Dates: start: 20080116, end: 20080116
  31. HEPARIN SODIUM INJECTION [Suspect]
     Route: 042
     Dates: start: 20080118, end: 20080118
  32. HEPARIN SODIUM INJECTION [Suspect]
     Route: 042
     Dates: start: 20080120, end: 20080120
  33. HEPARIN SODIUM INJECTION [Suspect]
     Route: 042
     Dates: start: 20080122, end: 20080122
  34. HEPARIN SODIUM INJECTION [Suspect]
     Route: 042
     Dates: start: 20080129, end: 20080129
  35. ANTIBIOTICS [Concomitant]
     Indication: PRODUCT USED FOR UNKNOWN INDICATION
     Route: 065

REACTIONS (12)
  - ABDOMINAL PAIN UPPER [None]
  - ARTERIOSCLEROSIS CORONARY ARTERY [None]
  - CARDIAC ARREST [None]
  - COLITIS ISCHAEMIC [None]
  - DIARRHOEA [None]
  - DIZZINESS [None]
  - DYSPNOEA [None]
  - HEPARIN-INDUCED THROMBOCYTOPENIA [None]
  - MYOCARDIAL INFARCTION [None]
  - NAUSEA [None]
  - UNRESPONSIVE TO STIMULI [None]
  - VOMITING [None]
